FAERS Safety Report 5294685-8 (Version None)
Quarter: 2007Q2

REPORT INFORMATION
  Report Type: 
  Country: None (occurrence: None)
  Receive Date: 20070412
  Receipt Date: 20070328
  Transmission Date: 20071010
  Serious: Yes (Other)
  Sender: FDA-Public Use
  Company Number: GBWYE035615MAR07

PATIENT
  Sex: Female
  Weight: 57.2 kg

DRUGS (7)
  1. ENBREL [Suspect]
     Indication: RHEUMATOID ARTHRITIS
     Route: 058
     Dates: start: 20010521, end: 20070301
  2. FERROUS SULFATE [Concomitant]
     Indication: ANAEMIA
     Route: 048
     Dates: start: 20060101
  3. AMOXICILLIN + CLAVULANATE POTASSIUM [Concomitant]
     Indication: SPLENECTOMY
     Route: 048
     Dates: start: 19990101
  4. IBUPROFEN [Concomitant]
     Indication: RHEUMATOID ARTHRITIS
     Route: 048
     Dates: start: 20020101
  5. PARAMOL [Concomitant]
     Indication: RHEUMATOID ARTHRITIS
     Dosage: 2 DOSES AS NEEDED
     Route: 048
     Dates: start: 20050101
  6. CITALOPRAM HYDROBROMIDE [Concomitant]
     Indication: DEPRESSION
     Route: 048
     Dates: start: 20040101
  7. ZIMOVANE [Concomitant]
     Indication: DEPRESSION
     Dosage: 2 DOSE NOCTE
     Route: 048
     Dates: start: 20000101

REACTIONS (1)
  - PULMONARY FIBROSIS [None]
